FAERS Safety Report 5816256 (Version 4)
Quarter: 2012Q4

REPORT INFORMATION
  Report Type: 
  Country: JP (occurrence: JP)
  Receive Date: 20050610
  Receipt Date: 20121004
  Transmission Date: 20130627
  Serious: Yes (Death, Hospitalization)
  Sender: FDA-Public Use
  Company Number: JP-JNJFOC-20050600339

PATIENT
  Age: 43 Year
  Sex: Male
  Weight: 55.85 kg

DRUGS (1)
  1. REMICADE [Suspect]
     Indication: CROHN^S DISEASE
     Route: 042
     Dates: start: 20031206

REACTIONS (4)
  - Ascites [Unknown]
  - Malignant ascites [Fatal]
  - Colon cancer [Fatal]
  - Drug ineffective [Unknown]
